FAERS Safety Report 10035067 (Version 1)
Quarter: 2014Q1

REPORT INFORMATION
  Report Type: Spontaneous
  Country: DK (occurrence: DK)
  Receive Date: 20140325
  Receipt Date: 20140325
  Transmission Date: 20141002
  Serious: Yes (Other)
  Sender: FDA-Public Use
  Company Number: CHPA2014DK003997

PATIENT
  Age: 56 Year
  Sex: Female

DRUGS (1)
  1. OTRIVIN [Suspect]
     Route: 065

REACTIONS (5)
  - Hearing impaired [Recovered/Resolved]
  - Malaise [Recovered/Resolved]
  - Dizziness [Recovered/Resolved]
  - Ear swelling [Recovered/Resolved]
  - Incorrect product storage [Unknown]
